FAERS Safety Report 25607208 (Version 1)
Quarter: 2025Q3

REPORT INFORMATION
  Report Type: Report from Study
  Country: CA (occurrence: CA)
  Receive Date: 20250725
  Receipt Date: 20250725
  Transmission Date: 20251020
  Serious: Yes (Other)
  Sender: MYLAN
  Company Number: CA-PFIZER INC-202101110647

PATIENT
  Age: 64 Year
  Sex: Female

DRUGS (2)
  1. LYRICA [Suspect]
     Active Substance: PREGABALIN
     Indication: Skin burning sensation
     Dosage: UNK, BID (2 EVERY 1 DAYS)
  2. FINGOLIMOD HYDROCHLORIDE [Suspect]
     Active Substance: FINGOLIMOD HYDROCHLORIDE
     Indication: Relapsing-remitting multiple sclerosis
     Dosage: 0.5 MILLIGRAM, QD (1 EVERY 1 DAYS)

REACTIONS (2)
  - Somnolence [Not Recovered/Not Resolved]
  - Hip surgery [Not Recovered/Not Resolved]
